FAERS Safety Report 8403375-1 (Version None)
Quarter: 2012Q2

REPORT INFORMATION
  Report Type: 
  Country: None (occurrence: None)
  Receive Date: 20120601
  Receipt Date: 20120530
  Transmission Date: 20120825
  Serious: No
  Sender: FDA-Public Use
  Company Number: US-PFIZER INC-2012114643

PATIENT
  Sex: Female

DRUGS (7)
  1. LIPITOR [Suspect]
     Dosage: 40 MG, ONE TABLET AT BEDTIME
  2. IBUPROFEN [Concomitant]
     Dosage: 800 MG
  3. LEVOXYL [Concomitant]
     Dosage: 125 MCG
  4. LOPRESSOR [Concomitant]
     Dosage: 50 MG
  5. CELEBREX [Suspect]
     Dosage: 100 MG, UNK
  6. FLEXERIL [Concomitant]
     Dosage: 10 MG
  7. PRINZIDE [Concomitant]
     Dosage: 20/25

REACTIONS (1)
  - PAIN [None]
